FAERS Safety Report 4345058-3 (Version None)
Quarter: 2004Q2

REPORT INFORMATION
  Report Type: 
  Country: None (occurrence: None)
  Receive Date: 20040420
  Receipt Date: 20040414
  Transmission Date: 20050107
  Serious: Yes (Death, Life-Threatening, Hospitalization, Disabling)
  Sender: FDA-Public Use
  Company Number: AT-JNJFOC-20040202496

PATIENT
  Age: 77 Year
  Sex: Female
  Weight: 53 kg

DRUGS (3)
  1. CAELXY (DOXORUBICIN HYDROCHLORIDE) LIPOSOME [Suspect]
     Indication: BREAST CANCER METASTATIC
     Dosage: 70 MG , INTRAVENOUS
     Route: 042
     Dates: start: 20040113, end: 20040113
  2. BIPHOSPHONATE      (ALL OTHER THERAPEUTIC PRODUCTS) [Concomitant]
  3. FASLODEX (FULVESTRANT) INJECTION [Concomitant]

REACTIONS (6)
  - ATRIAL FIBRILLATION [None]
  - CEREBROVASCULAR ACCIDENT [None]
  - DISEASE PROGRESSION [None]
  - HEMIPARESIS [None]
  - VOMITING [None]
  - WEIGHT DECREASED [None]
